FAERS Safety Report 11247574 (Version 1)
Quarter: 2015Q3

REPORT INFORMATION
  Report Type: Spontaneous
  Country: US (occurrence: US)
  Receive Date: 20150708
  Receipt Date: 20150708
  Transmission Date: 20151125
  Serious: Yes (Other)
  Sender: FDA-Public Use
  Company Number: US-ALEXION PHARMACEUTICALS INC.-A201502422

PATIENT

DRUGS (3)
  1. FOLATE [Concomitant]
     Active Substance: FOLATE SODIUM
     Indication: PRODUCT USED FOR UNKNOWN INDICATION
     Dosage: UNK, QD
     Route: 065
  2. SOLIRIS [Suspect]
     Active Substance: ECULIZUMAB
     Indication: PAROXYSMAL NOCTURNAL HAEMOGLOBINURIA
     Dosage: 600 MG, UNK
     Route: 042
     Dates: start: 20130821
  3. SOLIRIS [Suspect]
     Active Substance: ECULIZUMAB
     Dosage: 900 MG, Q2W
     Route: 042
     Dates: start: 20150624

REACTIONS (16)
  - Nephrolithiasis [Unknown]
  - Haemoglobin decreased [Recovering/Resolving]
  - Polyuria [Unknown]
  - Malaise [Recovered/Resolved]
  - Prostatitis [Unknown]
  - Dyspnoea [Recovered/Resolved]
  - Fructosamine increased [Unknown]
  - Polydipsia [Unknown]
  - Anaemia [Recovering/Resolving]
  - Paroxysmal nocturnal haemoglobinuria [Recovered/Resolved]
  - Haemolysis [Recovered/Resolved]
  - Dysuria [Recovered/Resolved]
  - Visual impairment [Unknown]
  - Abdominal pain lower [Recovered/Resolved]
  - Hyperglycaemia [Unknown]
  - Fatigue [Recovered/Resolved]

NARRATIVE: CASE EVENT DATE: 20150415
